FAERS Safety Report 21292135 (Version 1)
Quarter: 2022Q3

REPORT INFORMATION
  Report Type: Spontaneous
  Country: US (occurrence: US)
  Receive Date: 20220904
  Receipt Date: 20220904
  Transmission Date: 20221026
  Serious: Yes (Hospitalization, Other)
  Sender: FDA-Public Use
  Company Number: US-NATCOUSA-2022-NATCOUSA-000077

PATIENT
  Age: 70 Year
  Sex: Male

DRUGS (3)
  1. AZACITIDINE [Suspect]
     Active Substance: AZACITIDINE
     Indication: Acute myeloid leukaemia
     Dosage: FIRST CYCLE
  2. VENETOCLAX [Suspect]
     Active Substance: VENETOCLAX
     Indication: Acute myeloid leukaemia
     Dosage: ONE CYCLE
  3. HYDROXYUREA [Concomitant]
     Active Substance: HYDROXYUREA
     Indication: Acute myeloid leukaemia

REACTIONS (10)
  - Pneumonitis [Recovered/Resolved]
  - Pancytopenia [Recovering/Resolving]
  - Acute respiratory failure [Recovered/Resolved]
  - Hyperleukocytosis [Unknown]
  - Condition aggravated [Unknown]
  - Acute kidney injury [Unknown]
  - Hemiparesis [Unknown]
  - Tumour lysis syndrome [Unknown]
  - Cerebrovascular disorder [Unknown]
  - Dysarthria [Unknown]
